FAERS Safety Report 16071215 (Version 4)
Quarter: 2019Q3

REPORT INFORMATION
  Report Type: Spontaneous
  Country: US (occurrence: US)
  Receive Date: 20190314
  Receipt Date: 20190809
  Transmission Date: 20191004
  Serious: No
  Sender: FDA-Public Use
  Company Number: US-PFIZER INC-2019103596

PATIENT
  Age: 58 Year
  Sex: Female

DRUGS (2)
  1. EUCRISA [Suspect]
     Active Substance: CRISABOROLE
     Indication: ECZEMA
     Dosage: AS NEEDED (APPLY TO AFFECTED AREAS TWICE A DAY AS NEEDED FOR 30 DAYS)
     Route: 061
     Dates: start: 20180815
  2. EUCRISA [Suspect]
     Active Substance: CRISABOROLE
     Dosage: AS NEEDED (TWICE A DAY PRN (AS NEEDED) )
     Route: 061
     Dates: start: 20190213

REACTIONS (1)
  - Application site pain [Unknown]
